FAERS Safety Report 10952067 (Version 1)
Quarter: 2015Q1

REPORT INFORMATION
  Report Type: Spontaneous
  Country: US (occurrence: None)
  Receive Date: 20150324
  Receipt Date: 20150324
  Transmission Date: 20150721
  Serious: Yes (Hospitalization)
  Sender: FDA-Public Use
  Company Number: None

PATIENT
  Age: 57 Year
  Sex: Female
  Weight: 124 kg

DRUGS (4)
  1. RILUZOLE. [Suspect]
     Active Substance: RILUZOLE
     Indication: PROGRESSIVE BULBAR PALSY
     Dosage: 50 MG 2XDAY
     Route: 048
     Dates: start: 20150101, end: 20150128
  2. FOSAMAX [Concomitant]
     Active Substance: ALENDRONATE SODIUM
  3. SYNTHROID [Concomitant]
     Active Substance: LEVOTHYROXINE SODIUM
  4. VITAMIN D3 [Concomitant]
     Active Substance: CHOLECALCIFEROL

REACTIONS (12)
  - Malnutrition [None]
  - Blood potassium abnormal [None]
  - Dehydration [None]
  - Pyrexia [None]
  - Fatigue [None]
  - Chromaturia [None]
  - Tachycardia [None]
  - Liver function test abnormal [None]
  - Protein total abnormal [None]
  - Electrolyte imbalance [None]
  - Blood magnesium abnormal [None]
  - Acute kidney injury [None]

NARRATIVE: CASE EVENT DATE: 20150126
